FAERS Safety Report 23382833 (Version 1)
Quarter: 2024Q1

REPORT INFORMATION
  Report Type: Spontaneous
  Country: US (occurrence: US)
  Receive Date: 20240109
  Receipt Date: 20240109
  Transmission Date: 20240410
  Serious: No
  Sender: FDA-Public Use
  Company Number: US-OCULAR THERAPEUTIX-2023OCX00034

PATIENT
  Age: 71 Year
  Sex: Female

DRUGS (3)
  1. DEXTENZA [Suspect]
     Active Substance: DEXAMETHASONE
     Indication: Cataract operation
     Dosage: 0.4 MG, SINGLE USE INSERT IN THE RIGHT PUNCTUM
     Route: 047
     Dates: start: 20230907
  2. PREDNISOLONE ACETATE [Concomitant]
     Active Substance: PREDNISOLONE ACETATE
  3. MOXIFLOXACIN [Concomitant]
     Active Substance: MOXIFLOXACIN

REACTIONS (1)
  - Expulsion of medication [Not Recovered/Not Resolved]

NARRATIVE: CASE EVENT DATE: 20230918
